FAERS Safety Report 18323778 (Version 2)
Quarter: 2020Q4

REPORT INFORMATION
  Report Type: Spontaneous
  Country: US (occurrence: US)
  Receive Date: 20200928
  Receipt Date: 20201123
  Transmission Date: 20210113
  Serious: Yes (Death, Hospitalization)
  Sender: FDA-Public Use
  Company Number: US-PFIZER INC-2020373403

PATIENT
  Age: 80 Year
  Sex: Male

DRUGS (1)
  1. VYNDAMAX [Suspect]
     Active Substance: TAFAMIDIS
     Indication: CARDIAC AMYLOIDOSIS
     Dosage: UNK
     Dates: start: 201801, end: 20200909

REACTIONS (3)
  - Cardiac failure [Fatal]
  - Blood pressure abnormal [Unknown]
  - Cardiac amyloidosis [Fatal]

NARRATIVE: CASE EVENT DATE: 2020
